FAERS Safety Report 16439387 (Version 2)
Quarter: 2019Q3

REPORT INFORMATION
  Report Type: Report from Study
  Country: US (occurrence: US)
  Receive Date: 20190617
  Receipt Date: 20190703
  Transmission Date: 20191004
  Serious: Yes (Other)
  Sender: FDA-Public Use
  Company Number: PHEH2019US024972

PATIENT
  Sex: Female
  Weight: 54 kg

DRUGS (2)
  1. GILENYA [Suspect]
     Active Substance: FINGOLIMOD HYDROCHLORIDE
     Dosage: 0.5 MG, QD
     Route: 048
  2. GILENYA [Suspect]
     Active Substance: FINGOLIMOD HYDROCHLORIDE
     Indication: MULTIPLE SCLEROSIS
     Dosage: 0.5 MG, QD
     Route: 048
     Dates: start: 20180818

REACTIONS (8)
  - Paraesthesia [Unknown]
  - Dysgraphia [Recovered/Resolved]
  - Gait disturbance [Recovered/Resolved]
  - Balance disorder [Unknown]
  - Visual field defect [Unknown]
  - Muscular weakness [Unknown]
  - Headache [Unknown]
  - Multiple sclerosis relapse [Recovered/Resolved]
